FAERS Safety Report 4999810-1 (Version None)
Quarter: 2006Q2

REPORT INFORMATION
  Report Type: 
  Country: None (occurrence: None)
  Receive Date: 20060509
  Receipt Date: 20060501
  Transmission Date: 20061013
  Serious: Yes (Death)
  Sender: FDA-Public Use
  Company Number: S06-USA-01685-01

PATIENT
  Age: 55 Year
  Sex: Male

DRUGS (4)
  1. CAMPRAL [Suspect]
     Indication: ABSTAINS FROM ALCOHOL
     Dosage: 666 MG TID PO
     Route: 048
     Dates: start: 20060101, end: 20060101
  2. ALCOHOL [Suspect]
  3. LISINOPRIL [Concomitant]
  4. METOPROLOL TARTRATE [Concomitant]

REACTIONS (3)
  - ACCIDENTAL DEATH [None]
  - ALCOHOL POISONING [None]
  - INJURY ASPHYXIATION [None]
